FAERS Safety Report 11568983 (Version 1)
Quarter: 2015Q3

REPORT INFORMATION
  Report Type: Spontaneous
  Country: GB (occurrence: GB)
  Receive Date: 20150929
  Receipt Date: 20150929
  Transmission Date: 20151125
  Serious: Yes (Other)
  Sender: FDA-Public Use
  Company Number: GB-ACTAVIS-2015-20193

PATIENT
  Age: 86 Year
  Sex: Female

DRUGS (2)
  1. TRAMADOL (UNKNOWN) [Suspect]
     Active Substance: TRAMADOL
     Indication: PAIN
     Dosage: 6 DF, DAILY (INCREASED FROM 1 DAILY)
     Route: 065
     Dates: start: 20150906
  2. TRAMADOL (UNKNOWN) [Suspect]
     Active Substance: TRAMADOL
     Dosage: 1 DF, DAILY
     Route: 065
     Dates: end: 20150905

REACTIONS (1)
  - Lip swelling [Recovering/Resolving]

NARRATIVE: CASE EVENT DATE: 20150906
